FAERS Safety Report 7822787 (Version 7)
Quarter: 2012Q4

REPORT INFORMATION
  Report Type: Report from Study
  Country: ES (occurrence: ES)
  Receive Date: 20110223
  Receipt Date: 20121023
  Transmission Date: 20130627
  Serious: Yes (Hospitalization, Other)
  Sender: FDA-Public Use
  Company Number: ES-CELGENEUS-144-C5013-10112162

PATIENT
  Age: 76 Year
  Sex: Male
  Weight: 69 kg

DRUGS (19)
  1. CC-5013 [Suspect]
     Indication: MULTIPLE MYELOMA
     Dosage: 25 Milligram
     Route: 048
     Dates: start: 20100309
  2. CC-5013 [Suspect]
     Dosage: 20 Milligram
     Route: 048
     Dates: start: 20101021, end: 20110105
  3. CC-5013 [Suspect]
     Route: 048
     Dates: start: 20110217, end: 20110928
  4. DEXAMETHASONE [Suspect]
     Indication: MULTIPLE MYELOMA
     Dosage: 20 Milligram
     Route: 065
     Dates: start: 20100309
  5. DEXAMETHASONE [Suspect]
     Dosage: 20 Milligram
     Route: 065
     Dates: start: 20101021, end: 20110106
  6. DEXAMETHASONE [Suspect]
     Route: 065
     Dates: end: 20110928
  7. ACETYLSALICYLIC ACID [Concomitant]
     Indication: THROMBOSIS PROPHYLAXIS
     Dosage: 100 Milligram
     Route: 048
     Dates: start: 20100820, end: 20110110
  8. ACETYLSALICYLIC ACID [Concomitant]
     Dosage: 100 Milligram
     Route: 048
     Dates: start: 20110119
  9. METAMIZOLE [Concomitant]
     Indication: LUMBAR PAIN
     Route: 048
     Dates: start: 20100527
  10. NOVOMIX 50 [Concomitant]
     Indication: DIABETES MELLITUS
     Dosage: 10 IU (International Unit)
     Route: 030
     Dates: start: 20100701
  11. NOVOMIX30 [Concomitant]
     Indication: DIABETES MELLITUS
     Dosage: 10 IU (International Unit)
     Route: 030
     Dates: start: 20100701
  12. SIMVASTATINE [Concomitant]
     Indication: HYPERCHOLESTEROLEMIA
     Dosage: 20 Milligram
     Route: 048
     Dates: start: 20100228, end: 20101215
  13. ENALAPRIL [Concomitant]
     Indication: HYPERTENSION
     Dosage: 5 Milligram
     Route: 048
     Dates: start: 20100222, end: 20101215
  14. OMEPRAZOLE [Concomitant]
     Indication: PROPHYLAXIS
     Dosage: 20 Milligram
     Route: 048
     Dates: start: 20100309
  15. LACTULOSA [Concomitant]
     Indication: CONSTIPATION PROPHYLAXIS
     Route: 048
     Dates: start: 20100317
  16. TELMISARTAN [Concomitant]
     Indication: HYPERTENSION
     Dosage: 40 Milligram
     Route: 048
     Dates: start: 20100317
  17. DUROGESIC [Concomitant]
     Indication: LUMBAR PAIN
     Dosage: 16.6667 Milligram
     Route: 062
     Dates: start: 20100527
  18. NOVORAPID [Concomitant]
     Indication: DIABETES MELLITUS
     Route: 030
     Dates: start: 20100711
  19. EPREX [Concomitant]
     Indication: ANEMIA
     Dosage: 5714.2857 IU (International Unit)
     Route: 058
     Dates: start: 20101020, end: 20101117

REACTIONS (2)
  - Transitional cell cancer of the renal pelvis and ureter [Recovered/Resolved]
  - Metastases to lymph nodes [Not Recovered/Not Resolved]
